FAERS Safety Report 6106764-3 (Version None)
Quarter: 2009Q1

REPORT INFORMATION
  Report Type: 
  Country: None (occurrence: None)
  Receive Date: 20090307
  Receipt Date: 20090131
  Transmission Date: 20090719
  Serious: Yes (Other)
  Sender: FDA-Public Use
  Company Number: US-JNJCH-2009005925

PATIENT
  Sex: Female
  Weight: 76.7 kg

DRUGS (3)
  1. ZYRTEC [Suspect]
     Indication: PRURITUS
     Route: 048
  2. LIPITOR [Suspect]
     Indication: BLOOD CHOLESTEROL INCREASED
     Dosage: TEXT:UNSPECIFIED
     Route: 065
  3. ZETIA [Suspect]
     Indication: DRUG USE FOR UNKNOWN INDICATION
     Dosage: TEXT:UNSPECIFIED
     Route: 065

REACTIONS (4)
  - HYPERSENSITIVITY [None]
  - HYPOKINESIA [None]
  - PNEUMONIA PRIMARY ATYPICAL [None]
  - WRONG DRUG ADMINISTERED [None]
